FAERS Safety Report 5307230-5 (Version None)
Quarter: 2007Q1

REPORT INFORMATION
  Report Type: 
  Country: None (occurrence: None)
  Receive Date: 20070201
  Receipt Date: 20061204
  Transmission Date: 20070707
  Serious: No
  Sender: FDA-Public Use
  Company Number: 2006PV026385

PATIENT
  Age: 32 Year
  Sex: Male
  Weight: 124.2856 kg

DRUGS (9)
  1. BYETTA [Suspect]
     Indication: INSULIN RESISTANT DIABETES
     Dosage: SEE IMAGE
     Route: 058
     Dates: start: 20060401, end: 20060425
  2. BYETTA [Suspect]
     Indication: INSULIN RESISTANT DIABETES
     Dosage: SEE IMAGE
     Route: 058
     Dates: start: 20060425
  3. METFORMIN HCL [Concomitant]
  4. COZAAR [Concomitant]
  5. ZOLOFT [Concomitant]
  6. SIMVASTATIN [Concomitant]
  7. CINNAMON [Concomitant]
  8. CHROMIUM PICOLINATE [Concomitant]
  9. VITAMIN E [Concomitant]

REACTIONS (6)
  - DECREASED APPETITE [None]
  - EARLY SATIETY [None]
  - FOOD CRAVING [None]
  - INJECTION SITE PAIN [None]
  - NAUSEA [None]
  - WEIGHT DECREASED [None]
